FAERS Safety Report 13168803 (Version 3)
Quarter: 2017Q2

REPORT INFORMATION
  Report Type: Spontaneous
  Country: US (occurrence: US)
  Receive Date: 20170131
  Receipt Date: 20170407
  Transmission Date: 20170830
  Serious: No
  Sender: FDA-Public Use
  Company Number: US-BIOGEN-2017BI00348126

PATIENT
  Sex: Female

DRUGS (1)
  1. AVONEX [Suspect]
     Active Substance: INTERFERON BETA-1A
     Indication: MULTIPLE SCLEROSIS
     Route: 065
     Dates: start: 20010513

REACTIONS (5)
  - Frustration tolerance decreased [Unknown]
  - Anxiety [Unknown]
  - Memory impairment [Recovered/Resolved]
  - Confusional state [Unknown]
  - Emotional distress [Unknown]
